FAERS Safety Report 7083500-8 (Version None)
Quarter: 2010Q4

REPORT INFORMATION
  Report Type: 
  Country: None (occurrence: None)
  Receive Date: 20101104
  Receipt Date: 20101029
  Transmission Date: 20110411
  Serious: Yes (Death, Hospitalization)
  Sender: FDA-Public Use
  Company Number: DE-TEVA-246382ISR

PATIENT
  Sex: Female

DRUGS (9)
  1. PAMIDRONIC ACID [Suspect]
     Route: 042
     Dates: start: 20090214, end: 20090214
  2. PAMIDRONIC ACID [Suspect]
     Route: 042
     Dates: start: 20090224
  3. VALPROIC ACID [Concomitant]
  4. FUROSEMIDE [Concomitant]
  5. MIDAZOLAM [Concomitant]
  6. SPIRONOLACTONE [Concomitant]
  7. HYDROCHLOROTHIAZIDE [Concomitant]
  8. ANTIBIOTICS [Concomitant]
  9. ANTIFUNGALS [Concomitant]

REACTIONS (5)
  - DRUG ADMINISTRATION ERROR [None]
  - EXTRAVASATION [None]
  - MULTI-ORGAN FAILURE [None]
  - NECROSIS [None]
  - SEPSIS [None]
